FAERS Safety Report 8223047-6 (Version None)
Quarter: 2012Q1

REPORT INFORMATION
  Report Type: 
  Country: None (occurrence: None)
  Receive Date: 20120321
  Receipt Date: 20120312
  Transmission Date: 20120608
  Serious: Yes (Hospitalization, Other)
  Sender: FDA-Public Use
  Company Number: US-ASTRAZENECA-2011SE33568

PATIENT
  Age: 478 Month
  Sex: Female

DRUGS (11)
  1. BIOIDENTICAL THYROID [Concomitant]
  2. VITAMINE C [Concomitant]
  3. MAGNESIUM [Concomitant]
  4. NEXIUM [Suspect]
     Indication: GASTROOESOPHAGEAL REFLUX DISEASE
     Dosage: DAILY
     Route: 048
     Dates: start: 20030101
  5. NEXIUM [Suspect]
     Route: 048
     Dates: start: 20030101, end: 20110101
  6. MAXALT [Concomitant]
     Dosage: 10 MG  1 TABLET AS NEEDED
  7. BIOIDENTICAL PROGESTERONE [Concomitant]
     Dosage: 100MG 1 EVERY DAY FOR 10 DAYS A MONTH
  8. LOVAZA [Concomitant]
     Dosage: TWO CAPSULES A DAY
  9. LEVROTHYROXSINE [Concomitant]
     Indication: HYPOTHYROIDISM
  10. VITAMIN D [Concomitant]
  11. RAMIPRIL [Concomitant]

REACTIONS (4)
  - LOWER LIMB FRACTURE [None]
  - PATELLA FRACTURE [None]
  - FALL [None]
  - POST PROCEDURAL INFECTION [None]
